FAERS Safety Report 9200906 (Version 1)
Quarter: 2013Q1

REPORT INFORMATION
  Report Type: Spontaneous
  Country: CA (occurrence: None)
  Receive Date: 20130327
  Receipt Date: 20130327
  Transmission Date: 20140127
  Serious: Yes (Other)
  Sender: FDA-Public Use
  Company Number: IPC201303-000092

PATIENT
  Age: 47 Year
  Sex: Female

DRUGS (1)
  1. CHLOROQUINE PHOSPHATE [Suspect]
     Indication: SYSTEMIC LUPUS ERYTHEMATOSUS

REACTIONS (6)
  - Retinal toxicity [None]
  - Keratopathy [None]
  - Weight decreased [None]
  - Retinal pigment epitheliopathy [None]
  - Retinal disorder [None]
  - Visual acuity reduced [None]
